FAERS Safety Report 7884060-1 (Version None)
Quarter: 2011Q4

REPORT INFORMATION
  Report Type: 
  Country: None (occurrence: None)
  Receive Date: 20111102
  Receipt Date: 20111027
  Transmission Date: 20120403
  Serious: Yes (Death)
  Sender: FDA-Public Use
  Company Number: PHEH2011US08283

PATIENT
  Sex: Female

DRUGS (15)
  1. TRACLEER [Concomitant]
  2. LANTUS [Concomitant]
  3. NOVOLOG [Concomitant]
  4. SPIRONOLACTONE [Concomitant]
     Dosage: UNK
  5. DIGOXIN [Concomitant]
  6. POTASSIUM [Concomitant]
  7. IRON [Concomitant]
  8. PRILOSEC [Concomitant]
  9. TOBI [Suspect]
     Indication: CYSTIC FIBROSIS
     Dosage: 300 MG, BID
     Dates: start: 20091101, end: 20110901
  10. SOTALOL HCL [Concomitant]
  11. HYDROXYCHLOROQUINE SULFATE [Concomitant]
  12. TREPROSTINOL [Concomitant]
  13. WARFARIN SODIUM [Concomitant]
  14. PREDNISONE [Concomitant]
  15. FUROSEMIDE [Concomitant]

REACTIONS (1)
  - DEATH [None]
